FAERS Safety Report 22143449 (Version 6)
Quarter: 2024Q2

REPORT INFORMATION
  Report Type: Spontaneous
  Country: US (occurrence: US)
  Receive Date: 20230327
  Receipt Date: 20240425
  Transmission Date: 20240715
  Serious: No
  Sender: FDA-Public Use
  Company Number: US-Blueprint Medicines Corporation-990

PATIENT
  Sex: Female

DRUGS (5)
  1. AYVAKIT [Suspect]
     Active Substance: AVAPRITINIB
     Indication: Systemic mastocytosis
     Route: 065
     Dates: start: 20230310
  2. AYVAKIT [Suspect]
     Active Substance: AVAPRITINIB
     Route: 065
     Dates: start: 20230310
  3. AYVAKIT [Suspect]
     Active Substance: AVAPRITINIB
     Route: 065
     Dates: start: 20230310
  4. AYVAKIT [Suspect]
     Active Substance: AVAPRITINIB
     Route: 065
     Dates: start: 20230310
  5. AYVAKIT [Suspect]
     Active Substance: AVAPRITINIB
     Route: 065
     Dates: start: 20230310

REACTIONS (12)
  - Blood bilirubin increased [Recovering/Resolving]
  - Eye swelling [Recovering/Resolving]
  - Platelet count decreased [Unknown]
  - Periorbital swelling [Recovering/Resolving]
  - Taste disorder [Recovered/Resolved]
  - Lacrimation increased [Unknown]
  - Swelling face [Unknown]
  - Sinusitis [Unknown]
  - Nasopharyngitis [Recovering/Resolving]
  - Osteoporosis [Unknown]
  - Dysgeusia [Unknown]
  - Platelet count abnormal [Unknown]
